FAERS Safety Report 9401406 (Version 3)
Quarter: 2013Q3

REPORT INFORMATION
  Report Type: Report from Study
  Country: NL (occurrence: NL)
  Receive Date: 20130715
  Receipt Date: 20130829
  Transmission Date: 20140515
  Serious: Yes (Other)
  Sender: FDA-Public Use
  Company Number: NL-BAXTER-2013BAX026374

PATIENT
  Sex: Male

DRUGS (3)
  1. GAMMAGARD S/D 10, POEDER VOOR INFUSIEVLOEISTOF [Suspect]
     Indication: EPILEPSY
     Route: 042
     Dates: start: 20121224, end: 20130704
  2. GAMMAGARD S/D 10, POEDER VOOR INFUSIEVLOEISTOF [Suspect]
     Indication: OFF LABEL USE
     Route: 042
     Dates: start: 20130530, end: 20130530
  3. GAMMAGARD S/D 10, POEDER VOOR INFUSIEVLOEISTOF [Suspect]
     Route: 042
     Dates: start: 20130617, end: 20130617

REACTIONS (4)
  - Drug effect incomplete [Unknown]
  - Tremor [Unknown]
  - Tremor [Unknown]
  - Fatigue [Unknown]
